FAERS Safety Report 9226039 (Version 2)
Quarter: 2013Q2

REPORT INFORMATION
  Report Type: Report from Study
  Country: CA (occurrence: CA)
  Receive Date: 20130411
  Receipt Date: 20130620
  Transmission Date: 20140414
  Serious: Yes (Hospitalization)
  Sender: FDA-Public Use
  Company Number: CA-JNJFOC-20121209635

PATIENT
  Age: 60 Year
  Sex: Female
  Weight: 56.7 kg

DRUGS (33)
  1. REMICADE [Suspect]
     Indication: CROHN^S DISEASE
     Route: 042
     Dates: start: 20130605
  2. REMICADE [Suspect]
     Indication: CROHN^S DISEASE
     Route: 042
     Dates: start: 20110306
  3. REMICADE [Suspect]
     Indication: CROHN^S DISEASE
     Route: 042
     Dates: start: 20121108, end: 20121206
  4. REMICADE [Suspect]
     Indication: CROHN^S DISEASE
     Route: 042
     Dates: start: 201301
  5. MAGNESIUM [Concomitant]
     Dosage: 1 TABLET IN THE MORNING AND BEDTIME
     Route: 048
  6. IMOVANE [Concomitant]
     Dosage: QHS (AT BED TIME) PRN (AS NEEDED)
     Route: 048
  7. SALOFALK [Concomitant]
     Route: 048
  8. SALOFALK [Concomitant]
     Dosage: 3 TABLETS IN MORNING AND 3 TABLETS AT BED TIME
     Route: 048
  9. CELEBREX [Concomitant]
     Dosage: 1 TABLET IN MORNING AND 1 TABLET AT BED TIME
     Route: 048
  10. PREMARIN [Concomitant]
     Dosage: 1 TABLET AT BEDTIME
     Route: 048
  11. SYNTHROID [Concomitant]
     Dosage: IN MORNING
     Route: 048
  12. TRAZODONE [Concomitant]
     Dosage: AT BED TIME
     Route: 048
  13. AMITRIPTYLINE [Concomitant]
     Dosage: AT BED TIME
     Route: 048
  14. PARIET [Concomitant]
     Dosage: IN MORMING
     Route: 048
  15. ASA [Concomitant]
     Route: 048
  16. FOSAMAX [Concomitant]
     Dosage: ON MONDAYS
     Route: 048
  17. ALL OTHER THERAPEUTICS [Concomitant]
     Dosage: 125 (UNSPECIFIED UNITS) 2 TABLETS
     Route: 048
  18. MULTIVIT [Concomitant]
     Route: 048
  19. VENTOLIN [Concomitant]
     Dosage: 2 PUFFS AS NEEDED (PRN)
     Route: 065
  20. VENTOLIN [Concomitant]
     Dosage: 2 PUFFS AS NEEDED (PRN)
     Route: 065
  21. ADVAIR DISKUS [Concomitant]
     Dosage: 1 PUFF AT MORNING AND NIGHT
     Route: 065
  22. SPIRIVA [Concomitant]
     Dosage: 2 PUFFS Q AM
     Route: 065
  23. ZOFRAN [Concomitant]
     Dosage: PRN (AS NEEDED)
     Route: 042
  24. DOMPERIDONE [Concomitant]
     Dosage: 1 TABLET AT MORNING, AFTERNOON AND NIGHT
     Route: 065
  25. LOVENOX [Concomitant]
     Dosage: IN MORNING
     Route: 065
  26. OXYCODOONE IR [Concomitant]
     Dosage: MORNING 3 TABLETS, AFTERNONN 3 TABLETS, BED TIME 2 TABLETS
     Route: 065
  27. VITAMIN B 12 [Concomitant]
     Dosage: 1CC
     Route: 065
  28. PERCOCET [Concomitant]
     Dosage: 2-3 PILLS AS NEEDED
     Route: 065
  29. GRAVOL [Concomitant]
     Dosage: AS NEEDED EVERY 3-4 HOURS
     Route: 065
  30. VITAMIN C [Concomitant]
     Dosage: APPROXIMATELY 1000 MG
     Route: 065
     Dates: start: 20121220
  31. MAGNESIUM [Concomitant]
     Route: 042
  32. FERROUS GLUCONATE [Concomitant]
     Dosage: AS NEEDED, 1 TABLET AT MORNING, AFTERNOON AND BED TIME
     Route: 065
  33. ASPIRIN [Concomitant]
     Dosage: AT BED TIME
     Route: 065

REACTIONS (4)
  - Intestinal obstruction [Recovering/Resolving]
  - Upper limb fracture [Recovering/Resolving]
  - Fall [Recovering/Resolving]
  - Infection [Recovering/Resolving]
